FAERS Safety Report 7199209-6 (Version None)
Quarter: 2010Q4

REPORT INFORMATION
  Report Type: 
  Country: None (occurrence: None)
  Receive Date: 20101228
  Receipt Date: 20101214
  Transmission Date: 20110411
  Serious: Yes (Hospitalization, Other)
  Sender: FDA-Public Use
  Company Number: PHHO1998AU08006

PATIENT
  Sex: Male

DRUGS (3)
  1. CLOZARIL [Suspect]
     Indication: SCHIZOPHRENIA, PARANOID TYPE
     Dosage: UNK
     Dates: start: 19930101, end: 19970101
  2. CLOZARIL [Suspect]
     Route: 048
     Dates: start: 19940627, end: 19980510
  3. CLOZARIL [Suspect]
     Dosage: UNK
     Dates: start: 19980101, end: 20000101

REACTIONS (6)
  - ANGINA PECTORIS [None]
  - ARRHYTHMIA [None]
  - CARDIOMYOPATHY [None]
  - ELECTROCARDIOGRAM ABNORMAL [None]
  - REGRESSIVE BEHAVIOUR [None]
  - SCHIZOPHRENIA [None]
